FAERS Safety Report 14732140 (Version 3)
Quarter: 2018Q2

REPORT INFORMATION
  Report Type: Report from Study
  Country: None (occurrence: PT)
  Receive Date: 20180409
  Receipt Date: 20180510
  Transmission Date: 20180711
  Serious: Yes (Other)
  Sender: FDA-Public Use
  Company Number: PT-ABBVIE-18K-130-2314953-00

PATIENT
  Age: 41 Year
  Sex: Male

DRUGS (2)
  1. HUMIRA [Suspect]
     Active Substance: ADALIMUMAB
     Route: 058
     Dates: start: 20170407, end: 201803
  2. HUMIRA [Suspect]
     Active Substance: ADALIMUMAB
     Indication: PSORIASIS
     Dosage: LOADING DOSE
     Route: 058
     Dates: start: 20170331, end: 20170331

REACTIONS (4)
  - Thrombosis [Unknown]
  - Visual impairment [Not Recovered/Not Resolved]
  - Eye disorder [Not Recovered/Not Resolved]
  - Mitral valve prolapse [Not Recovered/Not Resolved]

NARRATIVE: CASE EVENT DATE: 20180213
